FAERS Safety Report 4930443-9 (Version None)
Quarter: 2006Q1

REPORT INFORMATION
  Report Type: 
  Country: None (occurrence: None)
  Receive Date: 20060118
  Receipt Date: 20050830
  Transmission Date: 20060701
  Serious: No
  Sender: FDA-Public Use
  Company Number: 2005001708

PATIENT
  Age: 73 Year
  Sex: Female

DRUGS (7)
  1. TARCEVA [Suspect]
     Indication: LUNG CARCINOMA CELL TYPE UNSPECIFIED STAGE IV
     Dosage: SEE IMAGE
     Route: 048
     Dates: start: 20050413, end: 20050820
  2. TARCEVA [Suspect]
     Indication: LUNG CARCINOMA CELL TYPE UNSPECIFIED STAGE IV
     Dosage: SEE IMAGE
     Route: 048
     Dates: start: 20050821, end: 20050828
  3. TARCEVA [Suspect]
     Indication: LUNG CARCINOMA CELL TYPE UNSPECIFIED STAGE IV
     Dosage: SEE IMAGE
     Route: 048
     Dates: start: 20050829
  4. ZEBETA [Concomitant]
  5. LANOXIN [Concomitant]
  6. COLCHICINE [Concomitant]
  7. PREDNISONE [Concomitant]

REACTIONS (4)
  - ALOPECIA [None]
  - DIARRHOEA [None]
  - ONYCHOCLASIS [None]
  - RASH [None]
